FAERS Safety Report 8055257-5 (Version None)
Quarter: 2011Q4

REPORT INFORMATION
  Report Type: 
  Country: None (occurrence: None)
  Receive Date: 20111213
  Receipt Date: 20110920
  Transmission Date: 20120403
  Serious: No
  Sender: FDA-Public Use
  Company Number: 2011SP044447

PATIENT
  Age: 30 Year
  Sex: Female

DRUGS (2)
  1. CELEXA [Concomitant]
  2. SAPHRIS [Suspect]
     Indication: PRODUCT USED FOR UNKNOWN INDICATION
     Dosage: 5 MG; BID

REACTIONS (4)
  - NAUSEA [None]
  - DIZZINESS [None]
  - EXERCISE TOLERANCE DECREASED [None]
  - DEPRESSIVE SYMPTOM [None]
